FAERS Safety Report 6510277-4 (Version None)
Quarter: 2009Q4

REPORT INFORMATION
  Report Type: 
  Country: None (occurrence: None)
  Receive Date: 20091222
  Receipt Date: 20091216
  Transmission Date: 20100525
  Serious: Yes (Life-Threatening, Hospitalization)
  Sender: FDA-Public Use
  Company Number: FR-SANOFI-AVENTIS-2009SA009547

PATIENT
  Age: 62 Year
  Sex: Male

DRUGS (10)
  1. PREDNISOLONE [Suspect]
     Indication: SECONDARY HYPERTHYROIDISM
     Route: 048
     Dates: start: 20091021, end: 20091103
  2. LOVENOX [Suspect]
     Indication: ATRIAL FIBRILLATION
     Route: 058
     Dates: start: 20091030
  3. CORTANCYL [Suspect]
     Indication: SECONDARY HYPERTHYROIDISM
     Route: 048
     Dates: start: 20090923, end: 20091012
  4. PROPYLTHIOURACIL TAB [Suspect]
     Indication: HYPERTHYROIDISM
     Route: 048
     Dates: start: 20091014, end: 20091103
  5. HYDROCORTISONE [Suspect]
     Indication: SECONDARY HYPERTHYROIDISM
     Route: 048
     Dates: start: 20091012, end: 20091021
  6. PHENOXYMETHYLPENICILLIN [Suspect]
     Indication: PHARYNGITIS
     Route: 048
     Dates: start: 20091013, end: 20091021
  7. ESOMEPRAZOLE [Concomitant]
     Indication: DRUG USE FOR UNKNOWN INDICATION
     Route: 048
  8. KARDEGIC [Concomitant]
     Indication: DRUG USE FOR UNKNOWN INDICATION
     Route: 048
  9. SOTALEX [Concomitant]
     Indication: DRUG USE FOR UNKNOWN INDICATION
     Route: 048
  10. DIFFU K [Concomitant]
     Indication: DRUG USE FOR UNKNOWN INDICATION
     Route: 048

REACTIONS (1)
  - AGRANULOCYTOSIS [None]
